FAERS Safety Report 7066390-9 (Version None)
Quarter: 2010Q4

REPORT INFORMATION
  Report Type: 
  Country: None (occurrence: None)
  Receive Date: 20101027
  Receipt Date: 20091207
  Transmission Date: 20110411
  Serious: No
  Sender: FDA-Public Use
  Company Number: US-WYE-H12549909

PATIENT
  Age: 56 Year
  Sex: Female

DRUGS (1)
  1. PREMPRO [Suspect]
     Indication: HOT FLUSH
     Route: 048
     Dates: start: 20091001, end: 20091205

REACTIONS (3)
  - CONDITION AGGRAVATED [None]
  - MIGRAINE [None]
  - MUSCLE SPASMS [None]
